FAERS Safety Report 15691337 (Version 1)
Quarter: 2018Q4

REPORT INFORMATION
  Report Type: Spontaneous
  Country: HR (occurrence: HR)
  Receive Date: 20181205
  Receipt Date: 20181205
  Transmission Date: 20190205
  Serious: Yes (Hospitalization)
  Sender: FDA-Public Use
  Company Number: HR-SAKK-2018SA327549AA

PATIENT
  Age: 54 Year
  Sex: Female
  Weight: 66 kg

DRUGS (17)
  1. ARAVA [Suspect]
     Active Substance: LEFLUNOMIDE
     Dosage: 20 MG; EVERY DAY
     Route: 048
     Dates: start: 20090501, end: 20180523
  2. BRUFEN [IBUPROFEN] [Concomitant]
     Dosage: 600 MG
     Route: 048
  3. BRUNOQ [Concomitant]
     Dosage: 10MG QD
     Route: 048
  4. ISOPTO TEARS [HYPROMELLOSE] [Concomitant]
     Dosage: 2 QD
     Route: 047
  5. COLECALCIFEROL [Concomitant]
     Active Substance: CHOLECALCIFEROL
     Dosage: 4 GTT QD
     Route: 048
  6. EUTHYROX [Concomitant]
     Active Substance: LEVOTHYROXINE SODIUM
     Dosage: 75 UG QD
     Route: 048
  7. CONCOR COR [Concomitant]
     Active Substance: BISOPROLOL FUMARATE
     Dosage: 2.5 MG QD
     Route: 065
  8. NORMABEL [Concomitant]
     Active Substance: DIAZEPAM
     Dosage: 5 MG, UNK
     Route: 048
  9. SYMBICORT [Concomitant]
     Active Substance: BUDESONIDE\FORMOTEROL FUMARATE DIHYDRATE
     Dosage: 4 DF QD
     Route: 055
  10. HUMIRA [Suspect]
     Active Substance: ADALIMUMAB
     Indication: RHEUMATOID ARTHRITIS
     Dosage: 40 MG EVERY 14 DAYS.
     Route: 058
     Dates: start: 20161101, end: 20180510
  11. DECORTIN [Concomitant]
     Active Substance: PREDNISONE
     Dosage: 10 MG QD
     Route: 048
  12. LOSARTIC [Concomitant]
     Active Substance: LOSARTAN POTASSIUM
     Dosage: 100MG QD
     Route: 065
  13. MINIRIN [DESMOPRESSIN ACETATE] [Concomitant]
     Dosage: 20UG QD
     Route: 045
  14. CONTROLOC [PANTOPRAZOLE SODIUM SESQUIHYDRATE] [Concomitant]
     Dosage: 40 MG QD
     Route: 048
  15. SULFASALAZINE. [Suspect]
     Active Substance: SULFASALAZINE
     Indication: RHEUMATOID ARTHRITIS
     Dosage: 1000 MG EVERY DAY
     Route: 048
     Dates: start: 20070101, end: 20180523
  16. HUMIRA [Suspect]
     Active Substance: ADALIMUMAB
     Dosage: 40 MG EVERY 14 DAYS.
     Route: 058
     Dates: start: 201808, end: 20181105
  17. ROSUVASTATIN CALCIUM. [Suspect]
     Active Substance: ROSUVASTATIN CALCIUM
     Indication: HYPERLIPIDAEMIA
     Dosage: 10 MG, QD
     Route: 048
     Dates: start: 20160701, end: 20180523

REACTIONS (2)
  - Drug ineffective [Unknown]
  - Hepatic lesion [Recovered/Resolved]

NARRATIVE: CASE EVENT DATE: 2018
